FAERS Safety Report 5870016-7 (Version None)
Quarter: 2008Q3

REPORT INFORMATION
  Report Type: 
  Country: None (occurrence: None)
  Receive Date: 20080904
  Receipt Date: 20080523
  Transmission Date: 20090109
  Serious: No
  Sender: FDA-Public Use
  Company Number: US-BAYER-200823091NA

PATIENT
  Age: 23 Year
  Sex: Female
  Weight: 49 kg

DRUGS (2)
  1. YASMIN [Suspect]
     Indication: CONTRACEPTION
     Route: 048
     Dates: start: 20020101, end: 20080407
  2. ATIVAN [Concomitant]
     Indication: PANIC ATTACK
     Dates: start: 20050101

REACTIONS (5)
  - BLOOD GLUCOSE DECREASED [None]
  - INCREASED APPETITE [None]
  - PANIC ATTACK [None]
  - WEIGHT INCREASED [None]
  - WITHDRAWAL BLEEDING IRREGULAR [None]
